FAERS Safety Report 5646348-4 (Version None)
Quarter: 2008Q1

REPORT INFORMATION
  Report Type: 
  Country: None (occurrence: None)
  Receive Date: 20080303
  Receipt Date: 20080221
  Transmission Date: 20080703
  Serious: Yes (Hospitalization)
  Sender: FDA-Public Use
  Company Number: US-JNJFOC-20080206135

PATIENT
  Sex: Female
  Weight: 83.92 kg

DRUGS (4)
  1. DURAGESIC-100 [Suspect]
     Indication: BACK PAIN
     Dosage: 25UG/HR AND 50UG/HR PATCH
     Route: 062
  2. METHADONE HCL [Concomitant]
     Indication: PAIN
     Route: 048
  3. NEURONTIN [Concomitant]
     Route: 048
  4. NEURONTIN [Concomitant]
     Indication: PAIN
     Route: 048

REACTIONS (1)
  - SURGERY [None]
